FAERS Safety Report 17437594 (Version 1)
Quarter: 2020Q1

REPORT INFORMATION
  Report Type: Spontaneous
  Country: CA (occurrence: CA)
  Receive Date: 20200219
  Receipt Date: 20200219
  Transmission Date: 20200409
  Serious: Yes (Other)
  Sender: FDA-Public Use
  Company Number: CA-PFIZER INC-2019194164

PATIENT
  Age: 54 Year
  Sex: Female

DRUGS (10)
  1. REMICADE [Suspect]
     Active Substance: INFLIXIMAB
     Dosage: UNK
  2. STELARA [Suspect]
     Active Substance: USTEKINUMAB
     Dosage: UNK
  3. AMARYL [Suspect]
     Active Substance: GLIMEPIRIDE
     Dosage: UNK
  4. LEFLUNOMIDE. [Suspect]
     Active Substance: LEFLUNOMIDE
     Dosage: UNK
  5. ORENCIA [Suspect]
     Active Substance: ABATACEPT
     Dosage: UNK
  6. RISEDRONATE SODIUM. [Concomitant]
     Active Substance: RISEDRONATE SODIUM
     Dosage: 35 MILLIGRAM, 1 EVERY 1 WEEK
     Route: 048
  7. SIMPONI [Suspect]
     Active Substance: GOLIMUMAB
     Dosage: UNK
  8. METHOTREXATE SODIUM. [Suspect]
     Active Substance: METHOTREXATE SODIUM
     Dosage: UNK
  9. OTEZLA [Suspect]
     Active Substance: APREMILAST
     Dosage: UNK
  10. ENBREL [Suspect]
     Active Substance: ETANERCEPT
     Dosage: UNK

REACTIONS (3)
  - Off label use [Unknown]
  - Drug ineffective [Unknown]
  - Arthropathy [Unknown]
